FAERS Safety Report 20951551 (Version 1)
Quarter: 2022Q2

REPORT INFORMATION
  Report Type: Spontaneous
  Country: ES (occurrence: ES)
  Receive Date: 20220613
  Receipt Date: 20220613
  Transmission Date: 20220720
  Serious: Yes (Death, Hospitalization)
  Sender: FDA-Public Use
  Company Number: None

PATIENT
  Age: 80 Year
  Sex: Male

DRUGS (2)
  1. ATORVASTATIN CALCIUM [Suspect]
     Active Substance: ATORVASTATIN CALCIUM
     Indication: Dyslipidaemia
     Dosage: 20 MG, 1X/DAY
     Route: 048
     Dates: start: 20220301, end: 20220404
  2. QUETIAPINE [Suspect]
     Active Substance: QUETIAPINE
     Indication: Restlessness
     Dosage: 25 MG, 2X/DAY (FREQ:12 H;)
     Route: 048
     Dates: start: 20220318, end: 20220404

REACTIONS (2)
  - COVID-19 pneumonia [Fatal]
  - Hepatic cytolysis [Recovered/Resolved]

NARRATIVE: CASE EVENT DATE: 20220404
